FAERS Safety Report 7207051-2 (Version None)
Quarter: 2011Q1

REPORT INFORMATION
  Report Type: 
  Country: None (occurrence: None)
  Receive Date: 20110103
  Receipt Date: 20101220
  Transmission Date: 20110831
  Serious: Yes (Other)
  Sender: FDA-Public Use
  Company Number: B0690801A

PATIENT
  Age: 43 Year
  Sex: Female

DRUGS (2)
  1. AUGMENTIN '125' [Suspect]
     Route: 048
  2. UNSPECIFIED DRUGS [Suspect]
     Route: 065

REACTIONS (4)
  - SKIN EROSION [None]
  - ENANTHEMA [None]
  - STEVENS-JOHNSON SYNDROME [None]
  - ERYTHEMA [None]
